FAERS Safety Report 13065770 (Version 1)
Quarter: 2016Q4

REPORT INFORMATION
  Report Type: Spontaneous
  Country: US (occurrence: US)
  Receive Date: 20161227
  Receipt Date: 20161227
  Transmission Date: 20170207
  Serious: Yes (Other)
  Sender: FDA-Public Use
  Company Number: US-PFIZER INC-2016585395

PATIENT
  Sex: Female

DRUGS (1)
  1. LYRICA [Suspect]
     Active Substance: PREGABALIN
     Dosage: UNK

REACTIONS (9)
  - Cardiac disorder [Unknown]
  - Malaise [Unknown]
  - Angina pectoris [Unknown]
  - Pain [Unknown]
  - Stress [Unknown]
  - Intentional product use issue [Unknown]
  - Diarrhoea [Unknown]
  - Movement disorder [Unknown]
  - Migraine [Unknown]
